FAERS Safety Report 17086445 (Version 1)
Quarter: 2019Q4

REPORT INFORMATION
  Report Type: Spontaneous
  Country: US (occurrence: US)
  Receive Date: 20191128
  Receipt Date: 20191128
  Transmission Date: 20200122
  Serious: No
  Sender: FDA-Public Use
  Company Number: US-UCBSA-2018036962

PATIENT
  Age: 19 Year
  Sex: Female
  Weight: 62.13 kg

DRUGS (3)
  1. KEPPRA [Suspect]
     Active Substance: LEVETIRACETAM
     Indication: SEIZURE
     Dosage: 500 MG, 2X/DAY (BID)
     Dates: start: 20180626, end: 201807
  2. KEPPRA XR [Suspect]
     Active Substance: LEVETIRACETAM
     Indication: SEIZURE
     Dosage: 500 MG, ONCE DAILY (QD)
     Dates: end: 20180625
  3. KEPPRA XR [Suspect]
     Active Substance: LEVETIRACETAM
     Dosage: HALF TABLET OF KEPPRA XR 500MG (250MG) IN THE MORNING AND KEPPRA XR 500MG ONE TABLET IN THE EVENING
     Dates: start: 201807

REACTIONS (4)
  - Somnolence [Recovering/Resolving]
  - Weight increased [Not Recovered/Not Resolved]
  - Intentional product misuse [Unknown]
  - Fatigue [Recovering/Resolving]

NARRATIVE: CASE EVENT DATE: 201806
